FAERS Safety Report 6384086-3 (Version None)
Quarter: 2009Q4

REPORT INFORMATION
  Report Type: 
  Country: None (occurrence: None)
  Receive Date: 20091001
  Receipt Date: 20090921
  Transmission Date: 20100525
  Serious: Yes (Other)
  Sender: FDA-Public Use
  Company Number: IE-PFIZER INC-2009264749

PATIENT
  Age: 14 Year

DRUGS (3)
  1. DEPO-PROVERA [Suspect]
     Indication: OFF LABEL USE
     Dosage: 150 MG, UNK
     Route: 030
     Dates: start: 20090729, end: 20090729
  2. DEPO-PROVERA [Suspect]
     Indication: AUTISM
  3. DEPO-PROVERA [Suspect]
     Indication: MENSTRUAL DISORDER

REACTIONS (3)
  - ANXIETY [None]
  - CRYING [None]
  - SCREAMING [None]
